FAERS Safety Report 20248414 (Version 2)
Quarter: 2022Q1

REPORT INFORMATION
  Report Type: Spontaneous
  Country: US (occurrence: None)
  Receive Date: 20211229
  Receipt Date: 20220112
  Transmission Date: 20220424
  Serious: Yes (Disabling)
  Sender: FDA-Public Use
  Company Number: 2021A892751

PATIENT
  Sex: Female

DRUGS (1)
  1. SYMBICORT [Suspect]
     Active Substance: BUDESONIDE\FORMOTEROL FUMARATE DIHYDRATE
     Dosage: UNKNOWN
     Route: 055

REACTIONS (6)
  - Disability [Unknown]
  - Night blindness [Unknown]
  - Gait disturbance [Unknown]
  - Dysphonia [Unknown]
  - Wheezing [Unknown]
  - Malaise [Unknown]
